FAERS Safety Report 15731696 (Version 5)
Quarter: 2019Q3

REPORT INFORMATION
  Report Type: Spontaneous
  Country: DE (occurrence: DE)
  Receive Date: 20181217
  Receipt Date: 20190718
  Transmission Date: 20191004
  Serious: Yes (Disabling, Other)
  Sender: FDA-Public Use
  Company Number: DE-BAUSCH-BL-2018-034170

PATIENT
  Age: 23 Year
  Sex: Male
  Weight: 70 kg

DRUGS (3)
  1. ALDARA [Suspect]
     Active Substance: IMIQUIMOD
     Dosage: LITTLE MORE THAN HALF A SACHET PER APPLICATION; STOP BETWEEN THE EIGHTH AND NINTH WEEK OF TREATMENT.
     Route: 062
     Dates: start: 20160620, end: 2016
  2. ALDARA [Suspect]
     Active Substance: IMIQUIMOD
     Route: 061
     Dates: start: 20160613, end: 201606
  3. ALDARA [Suspect]
     Active Substance: IMIQUIMOD
     Indication: ANOGENITAL WARTS
     Route: 061
     Dates: start: 20160407, end: 20160613

REACTIONS (24)
  - Musculoskeletal stiffness [Recovering/Resolving]
  - Abdominal pain [Recovering/Resolving]
  - Groin pain [Recovering/Resolving]
  - Formication [Recovering/Resolving]
  - Sleep disorder [Recovering/Resolving]
  - Rash maculo-papular [Recovered/Resolved]
  - Tinnitus [Recovering/Resolving]
  - Pain [Recovered/Resolved]
  - Muscle twitching [Not Recovered/Not Resolved]
  - Chest pain [Recovering/Resolving]
  - Headache [Recovering/Resolving]
  - Diarrhoea [Recovered/Resolved]
  - Angina pectoris [Recovered/Resolved]
  - Shock [Recovering/Resolving]
  - Muscle contractions involuntary [Not Recovered/Not Resolved]
  - Muscle spasms [Recovering/Resolving]
  - Discomfort [Recovering/Resolving]
  - Arthralgia [Recovering/Resolving]
  - Myalgia [Recovering/Resolving]
  - Crepitations [Recovering/Resolving]
  - Painful respiration [Recovering/Resolving]
  - Flank pain [Recovering/Resolving]
  - Pain in extremity [Recovering/Resolving]
  - Back pain [Recovering/Resolving]

NARRATIVE: CASE EVENT DATE: 2016
